FAERS Safety Report 7379818-1 (Version None)
Quarter: 2011Q1

REPORT INFORMATION
  Report Type: 
  Country: None (occurrence: None)
  Receive Date: 20110329
  Receipt Date: 20110318
  Transmission Date: 20110831
  Serious: No
  Sender: FDA-Public Use
  Company Number: US-PFIZER INC-2011060533

PATIENT
  Age: 92 Year
  Sex: Female

DRUGS (3)
  1. METOPROLOL TARTRATE AND HYDROCHLOROTHIAZIDE [Concomitant]
     Dosage: UNK
  2. LIPITOR [Suspect]
     Indication: BLOOD CHOLESTEROL INCREASED
     Dosage: 10 MG, DAILY
     Route: 048
     Dates: end: 20110101
  3. CORTISONE [Suspect]
     Dosage: UNK

REACTIONS (6)
  - MUSCLE INJURY [None]
  - MUSCLE DISORDER [None]
  - LIMB DISCOMFORT [None]
  - PAIN [None]
  - DRUG INEFFECTIVE [None]
  - MUSCULAR WEAKNESS [None]
